FAERS Safety Report 4500971-9 (Version None)
Quarter: 2004Q4

REPORT INFORMATION
  Report Type: 
  Country: None (occurrence: None)
  Receive Date: 20041115
  Receipt Date: 20030605
  Transmission Date: 20050328
  Serious: Yes (Hospitalization, Disabling)
  Sender: FDA-Public Use
  Company Number: US-MERCK-0306USA00847

PATIENT
  Age: 41 Year
  Sex: Male
  Weight: 74 kg

DRUGS (4)
  1. VIOXX [Suspect]
     Indication: ARTHRALGIA
     Route: 048
     Dates: start: 20010801
  2. VIOXX [Suspect]
     Route: 048
     Dates: start: 20010702, end: 20010706
  3. VIOXX [Suspect]
     Route: 048
     Dates: start: 20010706
  4. VIOXX [Suspect]
     Route: 048
     Dates: start: 20010530

REACTIONS (27)
  - ADVERSE EVENT [None]
  - ANAEMIA [None]
  - ARTHRALGIA [None]
  - ARTHROPATHY [None]
  - BACK PAIN [None]
  - BLOOD ALKALINE PHOSPHATASE INCREASED [None]
  - BLOOD CHOLESTEROL INCREASED [None]
  - BLOOD POTASSIUM INCREASED [None]
  - CAUSTIC INJURY [None]
  - CELLULITIS [None]
  - DRUG EFFECT DECREASED [None]
  - DRUG INEFFECTIVE [None]
  - HYPERLIPIDAEMIA [None]
  - INGUINAL HERNIA [None]
  - INJURY [None]
  - INSOMNIA [None]
  - JOINT SWELLING [None]
  - LOW DENSITY LIPOPROTEIN INCREASED [None]
  - LYMPHADENOPATHY [None]
  - LYMPHOEDEMA [None]
  - MUSCLE SPASMS [None]
  - ONYCHOMYCOSIS [None]
  - RHINITIS ALLERGIC [None]
  - STAPHYLOCOCCAL INFECTION [None]
  - SUBCUTANEOUS ABSCESS [None]
  - TINEA PEDIS [None]
  - VISUAL ACUITY REDUCED [None]
